FAERS Safety Report 6011744-2 (Version None)
Quarter: 2008Q4

REPORT INFORMATION
  Report Type: 
  Country: None (occurrence: None)
  Receive Date: 20081218
  Receipt Date: 20070420
  Transmission Date: 20090506
  Serious: Yes (Other)
  Sender: FDA-Public Use
  Company Number: JP-ROCHE-491877

PATIENT
  Sex: Male
  Weight: 39 kg

DRUGS (4)
  1. TAMIFLU [Suspect]
     Route: 048
     Dates: start: 20070214
  2. ASVERIN [Concomitant]
     Dosage: GENERIC REPORTED AS TIPEPIDINE HIBENZATE.
     Route: 048
     Dates: start: 20070214, end: 20070218
  3. MUCODYNE [Concomitant]
     Route: 048
     Dates: start: 20070214, end: 20070218
  4. PERIACTIN [Concomitant]
     Route: 048
     Dates: start: 20070214, end: 20070218

REACTIONS (1)
  - HALLUCINATION [None]
